FAERS Safety Report 9255555 (Version 1)
Quarter: 2013Q2

REPORT INFORMATION
  Report Type: Spontaneous
  Country: US (occurrence: US)
  Receive Date: 20130425
  Receipt Date: 20130425
  Transmission Date: 20140414
  Serious: No
  Sender: FDA-Public Use
  Company Number: US-009507513-1304USA015081

PATIENT
  Sex: Female

DRUGS (1)
  1. DULERA [Suspect]
     Dosage: 200 MCG/5 MCG, ONE PUFF , BID
     Route: 055
     Dates: start: 201208

REACTIONS (3)
  - Off label use [Unknown]
  - Product quality issue [Unknown]
  - No adverse event [Unknown]
